FAERS Safety Report 11660601 (Version 3)
Quarter: 2016Q1

REPORT INFORMATION
  Report Type: Spontaneous
  Country: JP (occurrence: JP)
  Receive Date: 20151026
  Receipt Date: 20160129
  Transmission Date: 20160525
  Serious: Yes (Other)
  Sender: FDA-Public Use
  Company Number: JP-GLAXOSMITHKLINE-JP2015JPN135773

PATIENT
  Age: 35 Year
  Sex: Male

DRUGS (2)
  1. LAMICTAL [Suspect]
     Active Substance: LAMOTRIGINE
     Indication: EPILEPSY
     Dosage: 200 MG, 1D
     Route: 048
  2. DEPAKENE [Suspect]
     Active Substance: VALPROIC ACID
     Dosage: UNK
     Route: 048

REACTIONS (1)
  - Ejaculation disorder [Unknown]

NARRATIVE: CASE EVENT DATE: 2015
